FAERS Safety Report 23540017 (Version 1)
Quarter: 2024Q1

REPORT INFORMATION
  Report Type: Spontaneous
  Country: ES (occurrence: ES)
  Receive Date: 20240219
  Receipt Date: 20240219
  Transmission Date: 20240410
  Serious: Yes (Other)
  Sender: FDA-Public Use
  Company Number: ES-BIOVITRUM-2023-ES-020489

PATIENT
  Age: 66 Year
  Sex: Male

DRUGS (1)
  1. AVATROMBOPAG [Suspect]
     Active Substance: AVATROMBOPAG
     Indication: Immune thrombocytopenia
     Dosage: STARTING DOSE 20MG/DAY AND MAINTENANCE DOSE 20MG/DAY (FROM 1 TABLET PER WEEK TO 2 TABLETS PER DAY)

REACTIONS (1)
  - Inflammatory bowel disease [Unknown]
